FAERS Safety Report 16004089 (Version 2)
Quarter: 2019Q1

REPORT INFORMATION
  Report Type: Spontaneous
  Country: IT (occurrence: IT)
  Receive Date: 20190226
  Receipt Date: 20190226
  Transmission Date: 20190418
  Serious: Yes (Disabling)
  Sender: FDA-Public Use
  Company Number: IT-ACCORD-109150

PATIENT
  Age: 46 Year
  Sex: Female

DRUGS (7)
  1. BUPROPION/BUPROPION HYDROCHLORIDE [Suspect]
     Active Substance: BUPROPION HYDROCHLORIDE
     Indication: WEIGHT LOSS DIET
     Route: 048
     Dates: start: 20111101
  2. FUROSEMIDE. [Suspect]
     Active Substance: FUROSEMIDE
     Indication: WEIGHT LOSS DIET
     Route: 048
     Dates: start: 20111101
  3. FUCUS VESICULOSUS [Suspect]
     Active Substance: FUCUS VESICULOSUS
     Indication: WEIGHT LOSS DIET
     Route: 048
     Dates: start: 20111101
  4. DEANOL [Suspect]
     Active Substance: DEANOL
     Indication: WEIGHT LOSS DIET
     Route: 048
     Dates: start: 20111101
  5. METFORMIN [Suspect]
     Active Substance: METFORMIN HYDROCHLORIDE
     Indication: WEIGHT LOSS DIET
     Route: 048
     Dates: start: 20111101
  6. SYNEPHRINE TARTRATE, DL- [Suspect]
     Active Substance: OXEDRINE TARTRATE
     Indication: WEIGHT LOSS DIET
     Route: 048
     Dates: start: 20111101
  7. EPHEDRINE. [Suspect]
     Active Substance: EPHEDRINE
     Indication: WEIGHT LOSS DIET
     Route: 048
     Dates: start: 20111101

REACTIONS (2)
  - Aphasia [Recovered/Resolved with Sequelae]
  - Ischaemic stroke [Recovered/Resolved with Sequelae]

NARRATIVE: CASE EVENT DATE: 20120203
